FAERS Safety Report 5388548-7 (Version None)
Quarter: 2007Q3

REPORT INFORMATION
  Report Type: 
  Country: None (occurrence: None)
  Receive Date: 20070716
  Receipt Date: 20070627
  Transmission Date: 20080115
  Serious: Yes (Hospitalization)
  Sender: FDA-Public Use
  Company Number: JP-PURDUE-MAG_2007_0000561

PATIENT
  Age: 51 Year
  Sex: Female

DRUGS (4)
  1. THEOPHYLLINE [Suspect]
     Indication: ASTHMA
     Dosage: 200 MG, DAILY
     Route: 048
     Dates: start: 19980101, end: 20030803
  2. PREDNISOLONE [Concomitant]
     Indication: ASTHMA
     Dosage: 5 MG, UNK
     Route: 048
     Dates: start: 19880101
  3. CALCIUM LACTATE [Concomitant]
     Indication: OSTEOPOROSIS
     Dosage: 3 GRAM, DAILY
     Route: 048
     Dates: start: 20010101
  4. ALFACALCIDOL [Concomitant]
     Indication: OSTEOPOROSIS
     Dosage: 1 MCG, DAILY
     Route: 048
     Dates: start: 20010101

REACTIONS (1)
  - HYPERCALCAEMIA [None]
